FAERS Safety Report 9794698 (Version 2)
Quarter: 2014Q1

REPORT INFORMATION
  Report Type: Spontaneous
  Country: GB (occurrence: GB)
  Receive Date: 20140102
  Receipt Date: 20140102
  Transmission Date: 20141002
  Serious: Yes (Hospitalization)
  Sender: FDA-Public Use
  Company Number: GB-009507513-1312GBR000107

PATIENT
  Sex: Male

DRUGS (4)
  1. EZETIMIBE (+) SIMVASTATIN [Suspect]
     Route: 048
  2. DOXAZOSIN MESYLATE [Concomitant]
     Indication: BLOOD PRESSURE
     Dosage: TOD
  3. LANSOPRAZOLE [Concomitant]
     Indication: GASTROOESOPHAGEAL REFLUX DISEASE
     Dosage: TOD
  4. LISINOPRIL [Concomitant]
     Indication: BLOOD PRESSURE
     Dosage: TOD

REACTIONS (1)
  - Adverse drug reaction [Unknown]
